FAERS Safety Report 4502817-1 (Version None)
Quarter: 2004Q4

REPORT INFORMATION
  Report Type: 
  Country: None (occurrence: None)
  Receive Date: 20041112
  Receipt Date: 20041109
  Transmission Date: 20050328
  Serious: No
  Sender: FDA-Public Use
  Company Number: TAP2004Q01440

PATIENT
  Age: 69 Year
  Sex: Female

DRUGS (2)
  1. NAPRAPAC 500 (COPACKAGED) [Suspect]
     Indication: ARTHRITIS
     Dosage: 1 IN 1 WK, PER ORAL
     Route: 048
     Dates: start: 20041107
  2. SINGULAIR [Concomitant]

REACTIONS (3)
  - DIZZINESS [None]
  - SOMNOLENCE [None]
  - VISION BLURRED [None]
